FAERS Safety Report 7905238-4 (Version None)
Quarter: 2011Q4

REPORT INFORMATION
  Report Type: 
  Country: None (occurrence: None)
  Receive Date: 20111109
  Receipt Date: 20111028
  Transmission Date: 20120403
  Serious: Yes (Other)
  Sender: FDA-Public Use
  Company Number: PHHY2011JP92947

PATIENT
  Age: 10 Year
  Sex: Female

DRUGS (4)
  1. CLOBAZAM [Suspect]
  2. LAMOTRIGINE [Suspect]
  3. VALPROIC ACID [Suspect]
  4. CARBAMAZEPINE [Suspect]
     Indication: EPILEPSY
     Dosage: UNK UKN, UNK
     Route: 048

REACTIONS (4)
  - MENTAL RETARDATION [None]
  - CLONIC CONVULSION [None]
  - EPILEPSY [None]
  - PETIT MAL EPILEPSY [None]
